FAERS Safety Report 6346651-9 (Version None)
Quarter: 2009Q3

REPORT INFORMATION
  Report Type: 
  Country: None (occurrence: None)
  Receive Date: 20090903
  Receipt Date: 20090818
  Transmission Date: 20100115
  Serious: Yes (Other)
  Sender: FDA-Public Use
  Company Number: B0590586A

PATIENT
  Sex: 0

DRUGS (7)
  1. RETROVIR [Suspect]
     Indication: ANTIRETROVIRAL THERAPY
  2. DIDANOSINE [Suspect]
     Indication: DRUG USE FOR UNKNOWN INDICATION
  3. EFAVIRENZ [Suspect]
     Indication: ANTIRETROVIRAL THERAPY
  4. SAQUINAVIR (FORMULATION UNKNOWN) (SAQUINAVIR) [Suspect]
     Indication: DRUG USE FOR UNKNOWN INDICATION
  5. RITONAVIR [Suspect]
     Indication: DRUG USE FOR UNKNOWN INDICATION
  6. SELENIUM SULFIDE [Suspect]
     Indication: DRUG USE FOR UNKNOWN INDICATION
  7. LISINOPRIL [Suspect]
     Indication: DRUG USE FOR UNKNOWN INDICATION

REACTIONS (9)
  - ABNORMAL DREAMS [None]
  - DRUG INTERACTION [None]
  - ERECTILE DYSFUNCTION [None]
  - LIVER INJURY [None]
  - NAIL DISORDER [None]
  - RENAL IMPAIRMENT [None]
  - SKIN ULCER [None]
  - THIRST [None]
  - VISUAL ACUITY REDUCED [None]
